FAERS Safety Report 9105321 (Version 2)
Quarter: 2013Q4

REPORT INFORMATION
  Report Type: Spontaneous
  Country: FR (occurrence: FR)
  Receive Date: 20130220
  Receipt Date: 20131230
  Transmission Date: 20140711
  Serious: Yes (Hospitalization)
  Sender: FDA-Public Use
  Company Number: FR-BRISTOL-MYERS SQUIBB COMPANY-17379124

PATIENT
  Age: 47 Year
  Sex: Female

DRUGS (3)
  1. REYATAZ CAPS [Suspect]
     Indication: HIV INFECTION
     Route: 048
     Dates: start: 200804, end: 20121127
  2. KIVEXA [Suspect]
     Indication: HIV INFECTION
     Dates: start: 200804
  3. NORVIR [Suspect]
     Dates: start: 201101

REACTIONS (2)
  - Pneumonia legionella [Recovering/Resolving]
  - Bile duct stone [Recovering/Resolving]
